FAERS Safety Report 16699994 (Version 8)
Quarter: 2019Q4

REPORT INFORMATION
  Report Type: Spontaneous
  Country: US (occurrence: US)
  Receive Date: 20190813
  Receipt Date: 20191016
  Transmission Date: 20200122
  Serious: Yes (Hospitalization, Other)
  Sender: FDA-Public Use
  Company Number: US-CELGENEUS-USA-20190802649

PATIENT
  Age: 49 Year
  Sex: Female
  Weight: 86.26 kg

DRUGS (2)
  1. IDHIFA [Suspect]
     Active Substance: ENASIDENIB MESYLATE
     Dosage: 50 MILLIGRAM
     Route: 048
     Dates: start: 2019, end: 20190809
  2. IDHIFA [Suspect]
     Active Substance: ENASIDENIB MESYLATE
     Indication: ACUTE MYELOID LEUKAEMIA
     Dosage: 100 MILLIGRAM
     Route: 048
     Dates: start: 20190703

REACTIONS (8)
  - Taste disorder [Recovered/Resolved]
  - Sepsis [Unknown]
  - Nausea [Recovered/Resolved]
  - Failure to thrive [Unknown]
  - Clostridium difficile colitis [Recovering/Resolving]
  - Vomiting [Recovered/Resolved]
  - Differentiation syndrome [Recovering/Resolving]
  - Decreased appetite [Recovered/Resolved]

NARRATIVE: CASE EVENT DATE: 2019
